FAERS Safety Report 7601907-4 (Version None)
Quarter: 2011Q3

REPORT INFORMATION
  Report Type: 
  Country: None (occurrence: None)
  Receive Date: 20110711
  Receipt Date: 20110630
  Transmission Date: 20111222
  Serious: Yes (Life-Threatening, Hospitalization, Other)
  Sender: FDA-Public Use
  Company Number: JP-SANOFI-AVENTIS-2011SA037048

PATIENT
  Age: 60 Year
  Sex: Male

DRUGS (9)
  1. MICARDIS [Concomitant]
     Indication: HYPERTENSION
     Dosage: IN EVENING
  2. OMEPRAZOLE [Concomitant]
     Dosage: IN MORNING
  3. AMARYL [Suspect]
     Indication: TYPE 2 DIABETES MELLITUS
     Route: 065
  4. AMARYL [Suspect]
     Dosage: DOSE REDUCED
     Route: 065
  5. PIOGLITAZONE HCL [Concomitant]
     Indication: TYPE 2 DIABETES MELLITUS
     Dosage: IN MORNING
  6. BASEN [Concomitant]
     Indication: TYPE 2 DIABETES MELLITUS
     Dosage: BEFORE MEALS
  7. ASPIRIN [Concomitant]
     Dosage: IN MORNING
  8. ATELEC [Concomitant]
     Indication: HYPERTENSION
     Dosage: IN MORNING
  9. CARVEDILOL [Concomitant]
     Indication: HYPERTENSION
     Dosage: IN MORNING

REACTIONS (5)
  - PNEUMONIA ASPIRATION [None]
  - PYREXIA [None]
  - HYPOGLYCAEMIC COMA [None]
  - LOSS OF CONSCIOUSNESS [None]
  - COUGH [None]
